FAERS Safety Report 7518593 (Version 8)
Quarter: 2012Q4

REPORT INFORMATION
  Report Type: 
  Country: CA (occurrence: CA)
  Receive Date: 20100802
  Receipt Date: 20121109
  Transmission Date: 20130627
  Serious: Yes (Death, Other)
  Sender: FDA-Public Use
  Company Number: PHHY2010CA47985

PATIENT
  Sex: Female

DRUGS (3)
  1. SANDOSTATIN LAR [Suspect]
     Indication: NEUROENDOCRINE TUMOUR
     Dosage: 60 mg, every 4 weeks
     Route: 030
     Dates: start: 20080814, end: 20091014
  2. SANDOSTATIN LAR [Suspect]
     Dosage: 60 mg, every 4 weeks
     Route: 030
     Dates: start: 201003
  3. AFINITOR [Suspect]
     Indication: NEUROENDOCRINE TUMOUR
     Dosage: 10 mg, daily
     Route: 048
     Dates: start: 20100805, end: 201107

REACTIONS (4)
  - Death [Fatal]
  - Hypertension [Unknown]
  - Heart rate increased [Unknown]
  - Heart rate decreased [Unknown]
